FAERS Safety Report 8102815-5 (Version None)
Quarter: 2011Q4

REPORT INFORMATION
  Report Type: 
  Country: None (occurrence: None)
  Receive Date: 20111222
  Receipt Date: 20111019
  Transmission Date: 20120403
  Serious: Yes (Hospitalization)
  Sender: FDA-Public Use
  Company Number: UTC-011090

PATIENT
  Age: 48 Year
  Sex: Female
  Weight: 103.6 kg

DRUGS (4)
  1. REVATIO (SILDENAFIL CITRATE) (UNKNOWN) [Concomitant]
  2. DIURETICS (DIURETICS) (UNKNOWN) [Concomitant]
  3. TYVASO [Suspect]
     Indication: COR PULMONALE CHRONIC
     Dosage: 18-72 MCGS (4 IN 1 D), INHALATION
     Route: 055
     Dates: start: 20100505
  4. COUMADIN [Concomitant]

REACTIONS (7)
  - URINARY TRACT INFECTION [None]
  - WOUND INFECTION [None]
  - DYSPNOEA [None]
  - PALPITATIONS [None]
  - HYPOTENSION [None]
  - TREATMENT NONCOMPLIANCE [None]
  - CHEST PAIN [None]
